FAERS Safety Report 22338573 (Version 1)
Quarter: 2023Q2

REPORT INFORMATION
  Report Type: Spontaneous
  Country: JP (occurrence: JP)
  Receive Date: 20230518
  Receipt Date: 20230518
  Transmission Date: 20230722
  Serious: Yes (Hospitalization, Other)
  Sender: FDA-Public Use
  Company Number: JP-PFIZER INC-PV202300005912

PATIENT
  Age: 66 Year
  Sex: Female

DRUGS (1)
  1. METHOTREXATE SODIUM [Suspect]
     Active Substance: METHOTREXATE SODIUM
     Indication: SAPHO syndrome
     Dosage: UNK
     Route: 048

REACTIONS (8)
  - Overdose [Recovering/Resolving]
  - Myelosuppression [Recovering/Resolving]
  - Pancytopenia [Recovering/Resolving]
  - Mucocutaneous disorder [Recovering/Resolving]
  - Rash follicular [Recovering/Resolving]
  - Erythema [Recovering/Resolving]
  - Oral mucosa erosion [Recovering/Resolving]
  - Off label use [Unknown]
